FAERS Safety Report 7240075-8 (Version None)
Quarter: 2011Q1

REPORT INFORMATION
  Report Type: 
  Country: None (occurrence: None)
  Receive Date: 20110124
  Receipt Date: 20110120
  Transmission Date: 20110831
  Serious: No
  Sender: FDA-Public Use
  Company Number: US-BIOGENIDEC-2011BI002355

PATIENT
  Age: 36 Year
  Sex: Female

DRUGS (1)
  1. AVONEX [Suspect]
     Indication: MULTIPLE SCLEROSIS
     Route: 030
     Dates: start: 20110118

REACTIONS (6)
  - DECREASED APPETITE [None]
  - HEADACHE [None]
  - NAUSEA [None]
  - MUCOUS STOOLS [None]
  - CHILLS [None]
  - DIARRHOEA [None]
